FAERS Safety Report 20429959 (Version 1)
Quarter: 2022Q1

REPORT INFORMATION
  Report Type: Report from Study
  Country: FR (occurrence: FR)
  Receive Date: 20220204
  Receipt Date: 20220204
  Transmission Date: 20220423
  Serious: Yes (Life-Threatening)
  Sender: FDA-Public Use
  Company Number: FR-SERVIER-S19003572

PATIENT

DRUGS (6)
  1. ONCASPAR [Suspect]
     Active Substance: PEGASPARGASE
     Indication: Acute lymphocytic leukaemia
     Dosage: 1350 IU (2500 IU/M2) QD, ON DAY 4
     Route: 042
     Dates: start: 20181109, end: 20181109
  2. VINCRISTINE [Suspect]
     Active Substance: VINCRISTINE
     Indication: Acute lymphocytic leukaemia
     Dosage: 1.6 MG, QD, ON D1, D8, D15, D22
     Route: 042
     Dates: start: 20181106, end: 20181120
  3. DOXORUBICIN [Concomitant]
     Active Substance: DOXORUBICIN
     Indication: Acute lymphocytic leukaemia
     Dosage: 32 MG, QD, ON D1, D8, D15, D22
     Route: 042
     Dates: start: 20181106, end: 20181120
  4. METHOTREXATE [Concomitant]
     Active Substance: METHOTREXATE
     Indication: Acute lymphocytic leukaemia
     Dosage: 15 MG, QD, ON D4
     Route: 037
     Dates: start: 20181109, end: 20181109
  5. DEXAMETHASONE [Concomitant]
     Active Substance: DEXAMETHASONE
     Indication: Acute lymphocytic leukaemia
     Dosage: 10 MG, QD, ON D1, D21
     Route: 048
     Dates: start: 20181106, end: 20181126
  6. AMBISOME [Concomitant]
     Active Substance: AMPHOTERICIN B
     Indication: Fungal infection
     Dosage: 80 MG, QD
     Route: 042
     Dates: start: 20180527

REACTIONS (1)
  - Hypernatraemia [Recovered/Resolved]

NARRATIVE: CASE EVENT DATE: 20181126
